FAERS Safety Report 7464849-3 (Version None)
Quarter: 2011Q2

REPORT INFORMATION
  Report Type: 
  Country: None (occurrence: None)
  Receive Date: 20110509
  Receipt Date: 20101109
  Transmission Date: 20111010
  Serious: Yes (Other)
  Sender: FDA-Public Use
  Company Number: US-BAYER-201020682NA

PATIENT
  Age: 27 Year
  Sex: Female
  Weight: 61.224 kg

DRUGS (11)
  1. YASMIN [Suspect]
     Indication: ORAL CONTRACEPTION
     Dosage: 1 DF, QD
     Route: 048
     Dates: start: 20041001, end: 20080201
  2. YASMIN [Suspect]
     Indication: PREMENSTRUAL SYNDROME
  3. SOTRET [Concomitant]
     Dosage: 30 MG, UNK
     Route: 048
  4. TAZORAC [Concomitant]
     Route: 061
  5. YAZ [Suspect]
     Indication: CONTRACEPTION
     Dosage: 1 DF, QD
     Dates: start: 20081101, end: 20090701
  6. MINOCYCLINE [Concomitant]
  7. YAZ [Suspect]
     Indication: ACNE
  8. PLAQUE SEAT [Concomitant]
  9. ACIPHEX [Concomitant]
     Route: 048
  10. YASMIN [Suspect]
     Indication: ACNE
  11. YAZ [Suspect]
     Indication: PREMENSTRUAL SYNDROME

REACTIONS (6)
  - CHOLELITHIASIS [None]
  - ABDOMINAL PAIN UPPER [None]
  - GALLBLADDER INJURY [None]
  - GASTROINTESTINAL DISORDER [None]
  - BACK PAIN [None]
  - CHOLECYSTITIS CHRONIC [None]
